FAERS Safety Report 5574825-3 (Version None)
Quarter: 2007Q4

REPORT INFORMATION
  Report Type: 
  Country: None (occurrence: None)
  Receive Date: 20071221
  Receipt Date: 20071221
  Transmission Date: 20080405
  Serious: Yes (Hospitalization)
  Sender: FDA-Public Use
  Company Number: None

PATIENT
  Age: 50 Year
  Sex: Male
  Weight: 70.3075 kg

DRUGS (2)
  1. HALFLYTELY [Suspect]
     Indication: COLONOSCOPY
     Dosage: 2 LITER BOTTLE ONCE PO
     Route: 048
     Dates: start: 20071111, end: 20071111
  2. BISACODYL TABLETS 5 MG EACH BRAINTREE LABORATORIES [Suspect]
     Indication: COLONOSCOPY
     Dosage: 4 TABLETS ONCE PO
     Route: 048
     Dates: start: 20071111, end: 20071111

REACTIONS (8)
  - ASTHENIA [None]
  - CONVULSION [None]
  - DIARRHOEA [None]
  - DIZZINESS [None]
  - FATIGUE [None]
  - GRAND MAL CONVULSION [None]
  - HYPONATRAEMIA [None]
  - REFUSAL OF TREATMENT BY PATIENT [None]
